FAERS Safety Report 8187202-6 (Version None)
Quarter: 2012Q1

REPORT INFORMATION
  Report Type: 
  Country: None (occurrence: None)
  Receive Date: 20120301
  Receipt Date: 20120227
  Transmission Date: 20120608
  Serious: Yes (Other)
  Sender: FDA-Public Use
  Company Number: A0967544A

PATIENT
  Sex: Female

DRUGS (1)
  1. ASPIRIN + CAFFEINE + SALICYLAMIDE (FORMULATION UNKNOWN) (ASPIRIN + CAF [Suspect]

REACTIONS (6)
  - EXPIRED DRUG ADMINISTERED [None]
  - MALAISE [None]
  - VOMITING [None]
  - HEADACHE [None]
  - HAEMATOCHEZIA [None]
  - ABDOMINAL PAIN UPPER [None]
